FAERS Safety Report 16086556 (Version 1)
Quarter: 2019Q1

REPORT INFORMATION
  Report Type: Report from Study
  Country: US (occurrence: US)
  Receive Date: 20190318
  Receipt Date: 20190318
  Transmission Date: 20190418
  Serious: Yes (Hospitalization)
  Sender: FDA-Public Use
  Company Number: US-ACTELION-A-NJ2016-142417

PATIENT
  Age: 39 Year
  Sex: Female
  Weight: 56.24 kg

DRUGS (4)
  1. OPSUMIT [Suspect]
     Active Substance: MACITENTAN
     Indication: PULMONARY HYPERTENSION
     Dosage: 10 MG, QD
     Route: 048
     Dates: start: 20160815
  2. VELETRI [Suspect]
     Active Substance: EPOPROSTENOL
     Dosage: 33.6 NG/KG, UNK
     Route: 042
  3. WARFARIN [Concomitant]
     Active Substance: WARFARIN
  4. VELETRI [Suspect]
     Active Substance: EPOPROSTENOL
     Indication: PULMONARY HYPERTENSION
     Dosage: 46 NG/KG, PER MIN
     Route: 042

REACTIONS (25)
  - Catheter site swelling [Unknown]
  - Catheter site related reaction [Unknown]
  - Peripheral swelling [Unknown]
  - Hypersensitivity [Unknown]
  - Device dislocation [Unknown]
  - Hypophagia [Recovered/Resolved]
  - Palpitations [Unknown]
  - Fluid overload [Recovered/Resolved]
  - Catheter management [Unknown]
  - Pain in extremity [Unknown]
  - Headache [Recovering/Resolving]
  - Dyspnoea exertional [Unknown]
  - Emergency care [Unknown]
  - Catheter site erythema [Unknown]
  - Right ventricular failure [Not Recovered/Not Resolved]
  - Dyspnoea [Unknown]
  - Catheter site hypersensitivity [Unknown]
  - Early satiety [Not Recovered/Not Resolved]
  - Flushing [Unknown]
  - Dizziness [Recovered/Resolved]
  - Dizziness postural [Recovered/Resolved]
  - Catheter site infection [Unknown]
  - Oedema peripheral [Recovered/Resolved]
  - Abdominal distension [Not Recovered/Not Resolved]
  - Abdominal pain upper [Unknown]

NARRATIVE: CASE EVENT DATE: 20160818
